FAERS Safety Report 9359845 (Version 1)
Quarter: 2013Q2

REPORT INFORMATION
  Report Type: Spontaneous
  Country: US (occurrence: US)
  Receive Date: 20130621
  Receipt Date: 20130621
  Transmission Date: 20140414
  Serious: No
  Sender: FDA-Public Use
  Company Number: US-009507513-1306USA009310

PATIENT
  Sex: 0

DRUGS (2)
  1. FOSAMAX [Suspect]
     Dosage: UNK
  2. ACTONEL [Suspect]
     Dosage: UNK

REACTIONS (2)
  - Bone pain [Unknown]
  - Arthralgia [Unknown]
